FAERS Safety Report 7274434-4 (Version None)
Quarter: 2011Q1

REPORT INFORMATION
  Report Type: 
  Country: None (occurrence: None)
  Receive Date: 20110204
  Receipt Date: 20110131
  Transmission Date: 20110831
  Serious: No
  Sender: FDA-Public Use
  Company Number: US-PFIZER INC-2011021825

PATIENT
  Sex: Male

DRUGS (3)
  1. PLAVIX [Concomitant]
  2. PANTOPRAZOLE [Suspect]
     Route: 048
  3. NEXIUM [Concomitant]

REACTIONS (1)
  - GASTRIC PH DECREASED [None]
